FAERS Safety Report 5357404-2 (Version None)
Quarter: 2007Q2

REPORT INFORMATION
  Report Type: 
  Country: None (occurrence: None)
  Receive Date: 20070614
  Receipt Date: 20070606
  Transmission Date: 20071010
  Serious: Yes (Other)
  Sender: FDA-Public Use
  Company Number: US-GENENTECH-242596

PATIENT
  Sex: Female

DRUGS (1)
  1. NUTROPIN [Suspect]
     Indication: DRUG USE FOR UNKNOWN INDICATION
     Dosage: 4.4 MG, QD
     Dates: start: 20040101

REACTIONS (2)
  - SCOLIOSIS [None]
  - THYROID DISORDER [None]
